FAERS Safety Report 4551602-3 (Version None)
Quarter: 2005Q1

REPORT INFORMATION
  Report Type: 
  Country: None (occurrence: None)
  Receive Date: 20050110
  Receipt Date: 20041223
  Transmission Date: 20050727
  Serious: Yes (Other)
  Sender: FDA-Public Use
  Company Number: C-04-0071

PATIENT
  Age: 4 Year
  Sex: Female
  Weight: 20.4119 kg

DRUGS (4)
  1. PREDNISOLONE SODIUM PHOSPHATE [Suspect]
     Indication: ASTHMA
     Dosage: 1 TEASPOON ORALLY, TAKEN THREE TIMES
     Route: 048
     Dates: start: 20041220, end: 20041221
  2. SINGULAIR [Concomitant]
  3. PULMICORT [Concomitant]
  4. ALBUTEROL [Concomitant]

REACTIONS (3)
  - PRURITUS GENERALISED [None]
  - SKIN LESION [None]
  - URTICARIA [None]
